FAERS Safety Report 18234208 (Version 3)
Quarter: 2020Q4

REPORT INFORMATION
  Report Type: Spontaneous
  Country: US (occurrence: US)
  Receive Date: 20200904
  Receipt Date: 20201123
  Transmission Date: 20210113
  Serious: No
  Sender: FDA-Public Use
  Company Number: US-STRONGBRIDGE BIOPHARMA-2020-STR-000211

PATIENT
  Sex: Female

DRUGS (4)
  1. KEVEYIS [Suspect]
     Active Substance: DICHLORPHENAMIDE
     Dosage: 12.5 MG, QD
     Route: 048
  2. KEVEYIS [Suspect]
     Active Substance: DICHLORPHENAMIDE
     Indication: FAMILIAL PERIODIC PARALYSIS
     Dosage: 25 MG, QD
     Route: 048
     Dates: start: 20190928
  3. KEVEYIS [Suspect]
     Active Substance: DICHLORPHENAMIDE
     Dosage: 25 MG, BID
     Route: 048
  4. KEVEYIS [Suspect]
     Active Substance: DICHLORPHENAMIDE
     Dosage: 37.5 MG, QD (1/2 TAB IN AM AND 1/4 TAB IN PM)
     Route: 048

REACTIONS (4)
  - Prescribed underdose [Unknown]
  - Memory impairment [Recovering/Resolving]
  - Wrong technique in product usage process [Unknown]
  - Feeling abnormal [Recovering/Resolving]
